FAERS Safety Report 16913158 (Version 1)
Quarter: 2019Q4

REPORT INFORMATION
  Report Type: Spontaneous
  Country: DE (occurrence: DE)
  Receive Date: 20191014
  Receipt Date: 20191014
  Transmission Date: 20200122
  Serious: No
  Sender: FDA-Public Use
  Company Number: DE-BEH-2019108066

PATIENT
  Age: 49 Year
  Sex: Female

DRUGS (3)
  1. HIZENTRA [Suspect]
     Active Substance: HUMAN IMMUNOGLOBULIN G
     Indication: CHRONIC INFLAMMATORY DEMYELINATING POLYRADICULONEUROPATHY
     Dosage: 90 MILLILITER, TOT, TWO INJECTION SITES
     Route: 058
     Dates: start: 20191009, end: 20191009
  2. HIZENTRA [Suspect]
     Active Substance: HUMAN IMMUNOGLOBULIN G
     Dosage: 50 MILLILITER (1 X 50 ML), TOT
     Route: 058
     Dates: start: 20191009, end: 20191009
  3. HIZENTRA [Suspect]
     Active Substance: HUMAN IMMUNOGLOBULIN G
     Dosage: 40 MILLILITER (2 X 20 ML), TOT
     Route: 058
     Dates: start: 20191009, end: 20191009

REACTIONS (3)
  - Influenza like illness [Unknown]
  - Pyrexia [Unknown]
  - Injection site pain [Recovered/Resolved]

NARRATIVE: CASE EVENT DATE: 20191010
